FAERS Safety Report 7597597-X (Version None)
Quarter: 2011Q3

REPORT INFORMATION
  Report Type: 
  Country: None (occurrence: None)
  Receive Date: 20110708
  Receipt Date: 20110628
  Transmission Date: 20111222
  Serious: Yes (Hospitalization)
  Sender: FDA-Public Use
  Company Number: CO-ROCHE-786185

PATIENT
  Sex: Male

DRUGS (2)
  1. PREDNISOLONE [Concomitant]
     Indication: ANTIINFLAMMATORY THERAPY
     Route: 048
  2. MIRCERA [Suspect]
     Route: 058
     Dates: start: 20110121

REACTIONS (3)
  - HYPOTENSION [None]
  - DEHYDRATION [None]
  - DIARRHOEA [None]
